FAERS Safety Report 18163149 (Version 1)
Quarter: 2020Q3

REPORT INFORMATION
  Report Type: Report from Study
  Country: IT (occurrence: IT)
  Receive Date: 20200818
  Receipt Date: 20200818
  Transmission Date: 20201103
  Serious: Yes (Hospitalization)
  Sender: FDA-Public Use
  Company Number: IT-MYLANLABS-2020M1062264

PATIENT
  Age: 79 Year
  Sex: Male

DRUGS (1)
  1. KLACID 500 MG/10 ML POLVERE E SOLVENTE PER SOLUZIONE PER INFUSIONE [Suspect]
     Active Substance: CLARITHROMYCIN
     Indication: CORONAVIRUS INFECTION
     Dosage: 2 GRAM, TOTAL
     Route: 042
     Dates: start: 20200326, end: 20200326

REACTIONS (4)
  - Skin reaction [Recovered/Resolved]
  - Off label use [Recovered/Resolved]
  - Pruritus [Recovered/Resolved]
  - Erythema [Recovered/Resolved]

NARRATIVE: CASE EVENT DATE: 20200326
